FAERS Safety Report 24454204 (Version 2)
Quarter: 2024Q4

REPORT INFORMATION
  Report Type: Report from Study
  Country: US (occurrence: US)
  Receive Date: 20241017
  Receipt Date: 20241018
  Transmission Date: 20250115
  Serious: No
  Sender: ROCHE
  Company Number: US-ROCHE-3410257

PATIENT
  Age: 60 Year
  Sex: Female

DRUGS (2)
  1. RITUXAN [Suspect]
     Active Substance: RITUXIMAB
     Indication: Acquired epidermolysis bullosa
     Route: 065
  2. RITUXAN [Suspect]
     Active Substance: RITUXIMAB
     Indication: Pemphigoid

REACTIONS (25)
  - Off label use [Unknown]
  - Rash [Unknown]
  - Pruritus [Unknown]
  - Essential hypertension [Unknown]
  - Obesity [Unknown]
  - Gastrooesophageal reflux disease [Unknown]
  - Colitis ulcerative [Unknown]
  - Gastrointestinal haemorrhage [Unknown]
  - Haematemesis [Unknown]
  - Melaena [Unknown]
  - Oesophagitis [Unknown]
  - Oesophageal ulcer [Unknown]
  - Vitamin D deficiency [Unknown]
  - Autoimmune thyroiditis [Unknown]
  - Type 2 diabetes mellitus [Unknown]
  - Hyperparathyroidism secondary [Unknown]
  - Hyperlipidaemia [Unknown]
  - Pain of skin [Unknown]
  - Eyelid ptosis [Unknown]
  - Cataract nuclear [Unknown]
  - Eyelid ptosis [Unknown]
  - Rib fracture [Unknown]
  - Osteopenia [Unknown]
  - Osteoarthritis [Unknown]
  - Radius fracture [Unknown]
